FAERS Safety Report 6220648-1 (Version None)
Quarter: 2009Q2

REPORT INFORMATION
  Report Type: 
  Country: None (occurrence: None)
  Receive Date: 20090610
  Receipt Date: 20090605
  Transmission Date: 20091009
  Serious: Yes (Other)
  Sender: FDA-Public Use
  Company Number: BR-ROCHE-636679

PATIENT
  Sex: Female
  Weight: 65 kg

DRUGS (4)
  1. RIVOTRIL [Suspect]
     Indication: HYPERTENSION
     Dosage: DOSE; 2.5 MG/ML
     Route: 048
     Dates: start: 20090201
  2. RIVOTRIL [Suspect]
     Route: 048
  3. RIVOTRIL [Suspect]
     Route: 048
  4. PRESSAT [Concomitant]
     Indication: HYPERTENSION
     Dosage: DOSE: 5 MG
     Dates: start: 20090201

REACTIONS (5)
  - DISTURBANCE IN ATTENTION [None]
  - INSOMNIA [None]
  - MEDICATION ERROR [None]
  - THERAPEUTIC RESPONSE DECREASED [None]
  - UTERINE LEIOMYOMA [None]
